FAERS Safety Report 12856679 (Version 1)
Quarter: 2016Q4

REPORT INFORMATION
  Report Type: Spontaneous
  Country: US (occurrence: US)
  Receive Date: 20161018
  Receipt Date: 20161018
  Transmission Date: 20170207
  Serious: No
  Sender: FDA-Public Use
  Company Number: US-TEVA-695608ACC

PATIENT
  Age: 22 Year
  Sex: Female
  Weight: 53.12 kg

DRUGS (1)
  1. PLAN B ONE-STEP [Suspect]
     Active Substance: LEVONORGESTREL
     Indication: POST COITAL CONTRACEPTION
     Dates: start: 20160918, end: 20160918

REACTIONS (4)
  - Abdominal pain lower [Not Recovered/Not Resolved]
  - Dizziness [Recovered/Resolved]
  - Emotional disorder [Not Recovered/Not Resolved]
  - Nausea [Recovered/Resolved]

NARRATIVE: CASE EVENT DATE: 20160919
